FAERS Safety Report 7688945-0 (Version None)
Quarter: 2011Q3

REPORT INFORMATION
  Report Type: 
  Country: None (occurrence: None)
  Receive Date: 20110817
  Receipt Date: 20110810
  Transmission Date: 20111222
  Serious: Yes (Death, Other)
  Sender: FDA-Public Use
  Company Number: PHHY2011NL72472

PATIENT
  Sex: Female

DRUGS (3)
  1. METHYLPREDNISOLONE [Concomitant]
  2. CYCLOSPORINE [Suspect]
     Indication: STEM CELL TRANSPLANT
     Dosage: UNK
  3. TACROLIMUS [Concomitant]

REACTIONS (9)
  - MICROANGIOPATHY [None]
  - CEREBRAL ATROPHY [None]
  - ACUTE GRAFT VERSUS HOST DISEASE IN INTESTINE [None]
  - EPILEPSY [None]
  - ACUTE GRAFT VERSUS HOST DISEASE IN SKIN [None]
  - ACUTE GRAFT VERSUS HOST DISEASE [None]
  - ACUTE GRAFT VERSUS HOST DISEASE IN LIVER [None]
  - THROMBOTIC THROMBOCYTOPENIC PURPURA [None]
  - CEREBRAL MICROANGIOPATHY [None]
